FAERS Safety Report 5227751-3 (Version None)
Quarter: 2007Q1

REPORT INFORMATION
  Report Type: 
  Country: None (occurrence: None)
  Receive Date: 20070202
  Receipt Date: 20070125
  Transmission Date: 20070707
  Serious: Yes (Hospitalization)
  Sender: FDA-Public Use
  Company Number: IL-MERCK-0701ISR00013

PATIENT
  Age: 29 Year
  Sex: Female

DRUGS (5)
  1. SINGULAIR [Suspect]
     Indication: ASTHMA
     Route: 048
  2. PREDNISONE [Concomitant]
     Route: 065
  3. PREDNISONE [Concomitant]
     Route: 065
  4. TERBUTALINE SULFATE [Concomitant]
  5. BUDESONIDE [Concomitant]

REACTIONS (2)
  - ALLERGIC GRANULOMATOUS ANGIITIS [None]
  - NEUROPATHY PERIPHERAL [None]
